FAERS Safety Report 5828303-4 (Version None)
Quarter: 2008Q3

REPORT INFORMATION
  Report Type: 
  Country: None (occurrence: None)
  Receive Date: 20080729
  Receipt Date: 20080729
  Transmission Date: 20090109
  Serious: Yes (Life-Threatening, Hospitalization)
  Sender: FDA-Public Use
  Company Number: None

PATIENT
  Age: 78 Year
  Sex: Female
  Weight: 61.2356 kg

DRUGS (1)
  1. LEXISCAN [Suspect]
     Indication: STRESS
     Dosage: 0.4MG X ONE IV
     Route: 042
     Dates: start: 20080717

REACTIONS (1)
  - ELECTROCARDIOGRAM ST SEGMENT ELEVATION [None]
